FAERS Safety Report 8348462-1 (Version None)
Quarter: 2012Q2

REPORT INFORMATION
  Report Type: 
  Country: None (occurrence: None)
  Receive Date: 20120509
  Receipt Date: 20120502
  Transmission Date: 20120825
  Serious: Yes (Hospitalization)
  Sender: FDA-Public Use
  Company Number: US-BAXTER-2012BAX004616

PATIENT
  Age: 53 Year
  Sex: Male
  Weight: 113 kg

DRUGS (15)
  1. AMBIEN [Concomitant]
  2. NEURONTIN [Concomitant]
  3. PROTONIX [Concomitant]
  4. NORVASC [Concomitant]
  5. DILAUDID [Concomitant]
  6. ATIVAN [Concomitant]
  7. MIRALAX [Concomitant]
  8. VELCADE [Suspect]
     Indication: CHEMOTHERAPY
     Route: 042
     Dates: start: 20110812, end: 20111014
  9. LACTULOSE [Concomitant]
  10. MORPHINE [Concomitant]
  11. CYTOXAN [Suspect]
     Indication: CHEMOTHERAPY
     Route: 042
     Dates: start: 20110812, end: 20110914
  12. DECADRON [Suspect]
     Indication: CHEMOTHERAPY
     Route: 048
     Dates: start: 20110907, end: 20111014
  13. MAGNESIUM [Concomitant]
  14. VALTREX [Concomitant]
  15. METOPROLOL TARTRATE [Concomitant]

REACTIONS (1)
  - SYNCOPE [None]
